FAERS Safety Report 5018165-X (Version None)
Quarter: 2006Q2

REPORT INFORMATION
  Report Type: 
  Country: None (occurrence: None)
  Receive Date: 20060605
  Receipt Date: 20060523
  Transmission Date: 20061013
  Serious: Yes (Death)
  Sender: FDA-Public Use
  Company Number: US-JNJFOC-20050704069

PATIENT
  Sex: Female
  Weight: 95.26 kg

DRUGS (2)
  1. ORTHO EVRA [Suspect]
     Indication: AMENORRHOEA
     Route: 062
  2. ORTHO EVRA [Suspect]
     Indication: CONTRACEPTION
     Route: 062

REACTIONS (8)
  - BRAIN OEDEMA [None]
  - CEREBROVASCULAR ACCIDENT [None]
  - EMBOLIC STROKE [None]
  - FACIAL PALSY [None]
  - HAEMATOCRIT DECREASED [None]
  - HAEMOGLOBIN DECREASED [None]
  - HAEMORRHAGIC INFARCTION [None]
  - SUPERIOR SAGITTAL SINUS THROMBOSIS [None]
